FAERS Safety Report 8197278-8 (Version None)
Quarter: 2012Q1

REPORT INFORMATION
  Report Type: 
  Country: None (occurrence: None)
  Receive Date: 20120309
  Receipt Date: 20120306
  Transmission Date: 20120608
  Serious: Yes (Hospitalization)
  Sender: FDA-Public Use
  Company Number: US-PFIZER INC-2008060778

PATIENT
  Sex: Male
  Weight: 58.9 kg

DRUGS (6)
  1. CARBOPLATIN [Suspect]
     Indication: NON-SMALL CELL LUNG CANCER
     Dosage: AUC=6 (613 MG), ONCE EVERY 3 WEEKS
     Route: 042
     Dates: start: 20071211, end: 20080429
  2. PACLITAXEL [Suspect]
     Indication: NON-SMALL CELL LUNG CANCER
     Dosage: 200 MG/M2 (362 MG; ONCE EVERY 3 WEEKS)
     Route: 042
     Dates: start: 20071211
  3. FENTANYL [Concomitant]
     Route: 065
     Dates: start: 20080401
  4. CP-751,871 [Suspect]
     Indication: NON-SMALL CELL LUNG CANCER
     Dosage: 20 MG/KG (1178 MG), EVERY 3 WEEKS
     Route: 042
     Dates: start: 20071212, end: 20080710
  5. SENOKOT [Concomitant]
     Route: 065
     Dates: start: 20080624
  6. WARFARIN SODIUM [Concomitant]
     Dates: start: 20060101

REACTIONS (3)
  - CHEST PAIN [None]
  - DYSPNOEA [None]
  - PNEUMONIA [None]
